FAERS Safety Report 14339345 (Version 6)
Quarter: 2018Q4

REPORT INFORMATION
  Report Type: Spontaneous
  Country: GB (occurrence: GB)
  Receive Date: 20171230
  Receipt Date: 20181116
  Transmission Date: 20190204
  Serious: Yes (Death, Hospitalization, Other)
  Sender: FDA-Public Use
  Company Number: GB-AUROBINDO-AUR-APL-2017-47963

PATIENT

DRUGS (8)
  1. CLARITHROMYCIN. [Suspect]
     Active Substance: CLARITHROMYCIN
     Indication: INFECTED SKIN ULCER
     Dosage: 1000 MILLIGRAM, 500 MG BID
     Route: 048
     Dates: start: 20170717, end: 20170724
  2. ADOPORT [Suspect]
     Active Substance: TACROLIMUS
     Indication: RENAL TRANSPLANT
     Dosage: 30 MILLIGRAM, ONCE A DAY, 15 MG, BID
     Route: 048
  3. TACROLIMUS. [Interacting]
     Active Substance: TACROLIMUS
     Indication: RENAL TRANSPLANT
  4. PREDNISOLONE. [Concomitant]
     Active Substance: PREDNISOLONE
     Indication: PRODUCT USED FOR UNKNOWN INDICATION
     Dosage: UNK
     Route: 065
  5. ENVARSUS XR [Suspect]
     Active Substance: TACROLIMUS
     Indication: PROPHYLAXIS AGAINST TRANSPLANT REJECTION
     Dosage: UNK
     Route: 065
  6. CLARITHROMYCIN. [Interacting]
     Active Substance: CLARITHROMYCIN
     Indication: PNEUMONIA
     Dosage: 1000 MILLIGRAM, ONCE A DAY, 500 MG, BID
     Route: 042
     Dates: start: 20180127, end: 20180131
  7. TACROLIMUS. [Interacting]
     Active Substance: TACROLIMUS
     Indication: PROPHYLAXIS AGAINST TRANSPLANT REJECTION
     Dosage: 3 MILLIGRAM, ONCE A DAY, 1.5 MG, BID
     Route: 065
  8. DIGOXIN. [Suspect]
     Active Substance: DIGOXIN
     Indication: PRODUCT USED FOR UNKNOWN INDICATION
     Dosage: UNK
     Route: 065

REACTIONS (9)
  - Drug level increased [Fatal]
  - Toxicity to various agents [Unknown]
  - Labelled drug-drug interaction medication error [Recovered/Resolved]
  - Drug interaction [Unknown]
  - Acute kidney injury [Fatal]
  - Malaise [Unknown]
  - Oesophageal perforation [Unknown]
  - Oesophageal carcinoma [Fatal]
  - Sepsis [Unknown]

NARRATIVE: CASE EVENT DATE: 20170721
